FAERS Safety Report 6065076-7 (Version None)
Quarter: 2009Q1

REPORT INFORMATION
  Report Type: 
  Country: None (occurrence: None)
  Receive Date: 20090204
  Receipt Date: 20090122
  Transmission Date: 20090719
  Serious: Yes (Hospitalization, Disabling, Other)
  Sender: FDA-Public Use
  Company Number: FR-GILEAD-2009-0019755

PATIENT
  Age: 35 Year
  Sex: Male
  Weight: 80 kg

DRUGS (6)
  1. TRUVADA [Suspect]
     Indication: HIV INFECTION
     Route: 048
     Dates: start: 20081216, end: 20090102
  2. REYATAZ [Suspect]
     Indication: HIV INFECTION
     Route: 048
     Dates: start: 20081216, end: 20090102
  3. NORVIR [Suspect]
     Indication: HIV INFECTION
     Route: 048
     Dates: start: 20081216, end: 20090102
  4. BACTRIM [Suspect]
     Route: 048
     Dates: start: 20081206, end: 20090102
  5. IMOVANE [Suspect]
     Route: 048
     Dates: start: 20081218, end: 20081231
  6. MEDROL [Suspect]
     Route: 048
     Dates: start: 20081210, end: 20081231

REACTIONS (8)
  - ARTHRALGIA [None]
  - GAMMA-GLUTAMYLTRANSFERASE INCREASED [None]
  - MYALGIA [None]
  - NEUROPATHY PERIPHERAL [None]
  - PRURIGO [None]
  - PYREXIA [None]
  - SENSORY DISTURBANCE [None]
  - VIRAL LOAD INCREASED [None]
